FAERS Safety Report 5593654-8 (Version None)
Quarter: 2008Q1

REPORT INFORMATION
  Report Type: 
  Country: None (occurrence: None)
  Receive Date: 20080116
  Receipt Date: 20071016
  Transmission Date: 20080703
  Serious: No
  Sender: FDA-Public Use
  Company Number: US-ABBOTT-07P-163-0421179-00

PATIENT
  Sex: Female

DRUGS (1)
  1. CLARITHROMYCIN ORAL SUSPENSION 125MG/5ML [Suspect]
     Indication: DRUG USE FOR UNKNOWN INDICATION
     Route: 048
     Dates: start: 20071010, end: 20071015

REACTIONS (1)
  - ABDOMINAL PAIN UPPER [None]
